FAERS Safety Report 14017174 (Version 1)
Quarter: 2017Q3

REPORT INFORMATION
  Report Type: Spontaneous
  Country: US (occurrence: US)
  Receive Date: 20170927
  Receipt Date: 20170927
  Transmission Date: 20171128
  Serious: No
  Sender: FDA-Public Use
  Company Number: US-BAYER-2017-185154

PATIENT
  Age: 71 Year
  Sex: Female

DRUGS (1)
  1. MIRALAX [Suspect]
     Active Substance: POLYETHYLENE GLYCOL 3350
     Indication: GASTROINTESTINAL DISORDER
     Dosage: 1 DF, BID
     Route: 048

REACTIONS (5)
  - Drug ineffective [Unknown]
  - Inappropriate prescribing [Unknown]
  - Gastrointestinal motility disorder [None]
  - Constipation [None]
  - Product use issue [Unknown]
